FAERS Safety Report 10871015 (Version 4)
Quarter: 2015Q3

REPORT INFORMATION
  Report Type: Report from Study
  Country: US (occurrence: US)
  Receive Date: 20150226
  Receipt Date: 20150728
  Transmission Date: 20151125
  Serious: Yes (Other)
  Sender: FDA-Public Use
  Company Number: US-SA-2014SA170731

PATIENT
  Age: 44 Year
  Sex: Female

DRUGS (1)
  1. AUBAGIO [Suspect]
     Active Substance: TERIFLUNOMIDE
     Indication: MULTIPLE SCLEROSIS
     Route: 048
     Dates: start: 20141205

REACTIONS (14)
  - Multiple sclerosis relapse [Unknown]
  - Dyspepsia [Unknown]
  - Nausea [Unknown]
  - Blood urine present [Unknown]
  - Memory impairment [Unknown]
  - Pain [Unknown]
  - Hiccups [Unknown]
  - Asthenia [Unknown]
  - Menorrhagia [Unknown]
  - Fatigue [Unknown]
  - Walking aid user [Recovering/Resolving]
  - Feeling abnormal [Unknown]
  - Migraine [Unknown]
  - Stress [Unknown]

NARRATIVE: CASE EVENT DATE: 201412
